FAERS Safety Report 5290771-7 (Version None)
Quarter: 2007Q2

REPORT INFORMATION
  Report Type: 
  Country: None (occurrence: None)
  Receive Date: 20070409
  Receipt Date: 20070328
  Transmission Date: 20071010
  Serious: Yes (Other)
  Sender: FDA-Public Use
  Company Number: US-PFIZER INC-2007026277

PATIENT
  Sex: Female
  Weight: 88.5 kg

DRUGS (4)
  1. LIPITOR [Suspect]
     Indication: BLOOD CHOLESTEROL INCREASED
     Dates: start: 20060401, end: 20061201
  2. MOTRIN [Suspect]
     Indication: PAIN IN EXTREMITY
  3. FELODIPINE [Concomitant]
  4. LISINOPRIL [Concomitant]

REACTIONS (5)
  - BLOOD CHOLESTEROL INCREASED [None]
  - COMPARTMENT SYNDROME [None]
  - DYSPEPSIA [None]
  - DYSSTASIA [None]
  - PAIN IN EXTREMITY [None]
